FAERS Safety Report 25952745 (Version 1)
Quarter: 2025Q4

REPORT INFORMATION
  Report Type: Spontaneous
  Country: US (occurrence: None)
  Receive Date: 20251023
  Receipt Date: 20251023
  Transmission Date: 20260118
  Serious: Yes (Hospitalization)
  Sender: FDA-CTU
  Company Number: None

PATIENT
  Sex: Female

DRUGS (1)
  1. VYNDAMAX [Suspect]
     Active Substance: TAFAMIDIS
     Indication: Product used for unknown indication
     Dosage: TAKE 61 MG (1 CAPSULE) BY MOUTH DAILY
     Route: 048
     Dates: start: 20241203

REACTIONS (2)
  - Cardiac failure congestive [None]
  - Viral infection [None]
